FAERS Safety Report 4277921-6 (Version None)
Quarter: 2004Q1

REPORT INFORMATION
  Report Type: 
  Country: None (occurrence: None)
  Receive Date: 20040123
  Receipt Date: 20040115
  Transmission Date: 20041129
  Serious: Yes (Hospitalization)
  Sender: FDA-Public Use
  Company Number: FR-GLAXOSMITHKLINE-B0320048A

PATIENT
  Age: 33 Year
  Sex: Female

DRUGS (6)
  1. COMBIVIR [Suspect]
     Indication: HIV INFECTION
     Dosage: 1UNIT TWICE PER DAY
     Route: 048
     Dates: start: 20030601, end: 20030616
  2. NOCERTONE [Suspect]
     Dosage: 2UNIT PER DAY
     Route: 048
     Dates: start: 20030610, end: 20030618
  3. QUITAXON [Suspect]
     Dosage: 2UNIT PER DAY
     Route: 048
     Dates: start: 20030501, end: 20030530
  4. SERESTA [Suspect]
     Dosage: 200MG PER DAY
     Route: 048
     Dates: start: 20030401, end: 20030618
  5. STILNOX [Suspect]
     Dosage: 2UNIT TWICE PER DAY
     Route: 048
     Dates: start: 20030201, end: 20030616
  6. EFFEXOR [Suspect]
     Dosage: 200MG PER DAY
     Route: 048
     Dates: start: 20021101, end: 20030618

REACTIONS (2)
  - STEVENS-JOHNSON SYNDROME [None]
  - TOXIC EPIDERMAL NECROLYSIS [None]
